FAERS Safety Report 4741604-6 (Version None)
Quarter: 2005Q3

REPORT INFORMATION
  Report Type: 
  Country: None (occurrence: None)
  Receive Date: 20050808
  Receipt Date: 20050721
  Transmission Date: 20060218
  Serious: Yes (Death, Other)
  Sender: FDA-Public Use
  Company Number: EWC050745162

PATIENT
  Age: 82 Year
  Sex: Female

DRUGS (1)
  1. ZYPREXA [Suspect]
     Dosage: 10 MG DAY

REACTIONS (1)
  - BLOOD GLUCOSE INCREASED [None]
